FAERS Safety Report 12311608 (Version 1)
Quarter: 2016Q2

REPORT INFORMATION
  Report Type: Spontaneous
  Country: US (occurrence: US)
  Receive Date: 20160427
  Receipt Date: 20160427
  Transmission Date: 20160815
  Serious: Yes (Death, Other)
  Sender: FDA-Public Use
  Company Number: US-MDT-ADR-2016-00758

PATIENT
  Age: 66 Year
  Sex: Female

DRUGS (9)
  1. ELIQUIS [Suspect]
     Active Substance: APIXABAN
  2. KLONOPIN [Suspect]
     Active Substance: CLONAZEPAM
  3. NEXIUM [Suspect]
     Active Substance: ESOMEPRAZOLE MAGNESIUM
  4. BACLOFEN. [Suspect]
     Active Substance: BACLOFEN
     Route: 037
  5. AVONEX [Suspect]
     Active Substance: INTERFERON BETA-1A
  6. ^A LOT OF OTHER ONES^ [Suspect]
     Active Substance: UNSPECIFIED INGREDIENT
  7. ^CARDIAC PILLS^ [Suspect]
     Active Substance: UNSPECIFIED INGREDIENT
  8. PROVIGIL [Suspect]
     Active Substance: MODAFINIL
  9. CARDIZEM [Suspect]
     Active Substance: DILTIAZEM HYDROCHLORIDE

REACTIONS (2)
  - Multiple sclerosis relapse [Fatal]
  - Aspiration [Fatal]
